FAERS Safety Report 4514575-5 (Version None)
Quarter: 2004Q4

REPORT INFORMATION
  Report Type: 
  Country: None (occurrence: None)
  Receive Date: 20041126
  Receipt Date: 20041118
  Transmission Date: 20050328
  Serious: Yes (Life-Threatening, Hospitalization)
  Sender: FDA-Public Use
  Company Number: DE-2004-032717

PATIENT
  Age: 67 Year
  Sex: Male
  Weight: 80 kg

DRUGS (7)
  1. ULTRAVIST 370 [Suspect]
     Indication: UROGRAPHY
     Dosage: 50 ML, 1 DOSE, INTRAVENOUS
     Route: 042
     Dates: start: 20040908, end: 20040908
  2. NEBILET 5 (NEBIVOLOL HYDROCHLORIDE) [Concomitant]
  3. SYMBICORT (FORMOTEROL FUMARATE) [Concomitant]
  4. A.A.S. (ACETYLSALICYLIC ACID) [Concomitant]
  5. OMNIC (TAMSULOSIN HYDROCHLORIDE) [Concomitant]
  6. DIOVAN [Concomitant]
  7. PENTAERYTHIRITOL TETRANITRATE TAB [Concomitant]

REACTIONS (17)
  - APNOEA [None]
  - ATHEROSCLEROSIS [None]
  - BURNING SENSATION [None]
  - CARDIOVASCULAR DISORDER [None]
  - CHRONIC OBSTRUCTIVE AIRWAYS DISEASE [None]
  - CIRCULATORY COLLAPSE [None]
  - ERYTHEMA [None]
  - FEELING HOT [None]
  - HEAT RASH [None]
  - HYPERSENSITIVITY [None]
  - HYPERTENSION [None]
  - HYPOTENSION [None]
  - LOSS OF CONSCIOUSNESS [None]
  - PULSE ABSENT [None]
  - RENAL FAILURE [None]
  - SYNCOPE [None]
  - VENTRICULAR EXTRASYSTOLES [None]
